FAERS Safety Report 25958850 (Version 1)
Quarter: 2025Q4

REPORT INFORMATION
  Report Type: Report from Study
  Country: EU (occurrence: EU)
  Receive Date: 20251025
  Receipt Date: 20251025
  Transmission Date: 20260117
  Serious: Yes (Other)
  Sender: CELLTRION
  Company Number: EU-ROCHE-10000408996

PATIENT

DRUGS (2)
  1. TRASTUZUMAB [Suspect]
     Active Substance: TRASTUZUMAB
     Indication: HER2 positive breast cancer
     Dates: start: 20240508
  2. PERTUZUMAB [Suspect]
     Active Substance: PERTUZUMAB
     Indication: HER2 positive breast cancer
     Dates: start: 20240508

REACTIONS (8)
  - Polyneuropathy [Unknown]
  - Neutrophil count decreased [Unknown]
  - Taste disorder [Unknown]
  - Feeling hot [Unknown]
  - Breast pain [Unknown]
  - Diarrhoea [Unknown]
  - Rhinovirus infection [Unknown]
  - Rash [Unknown]

NARRATIVE: CASE EVENT DATE: 20240515
